FAERS Safety Report 4573978-3 (Version None)
Quarter: 2005Q1

REPORT INFORMATION
  Report Type: 
  Country: None (occurrence: None)
  Receive Date: 20050204
  Receipt Date: 20050126
  Transmission Date: 20050727
  Serious: Yes (Hospitalization, Other)
  Sender: FDA-Public Use
  Company Number: US-2004-035457

PATIENT
  Age: 56 Year
  Sex: Female
  Weight: 86.2 kg

DRUGS (12)
  1. LEUKINE [Suspect]
     Indication: CHRONIC LYMPHOCYTIC LEUKAEMIA
     Dosage: SEE IMAGE
     Route: 058
     Dates: start: 20040223, end: 20041104
  2. LEUKINE [Suspect]
     Indication: CHRONIC LYMPHOCYTIC LEUKAEMIA
     Dosage: SEE IMAGE
     Route: 058
     Dates: start: 20041108
  3. GLEEVAC (IMATINIB MESILATE) [Concomitant]
  4. IRON (IRON) [Concomitant]
  5. CELEBREX [Concomitant]
  6. DARVON [Concomitant]
  7. MAXZIDE [Concomitant]
  8. NEXIUM  /USA/ (ESOMEPRAZOLE MAGNESIUM) [Concomitant]
  9. TESSALON [Concomitant]
  10. SULINDAC [Concomitant]
  11. SYNTHROID [Concomitant]
  12. TOPROL-XL [Concomitant]

REACTIONS (20)
  - ABDOMINAL PAIN UPPER [None]
  - BLOOD PRESSURE INCREASED [None]
  - BLOOD URIC ACID INCREASED [None]
  - CHILLS [None]
  - CHOLELITHIASIS [None]
  - DIARRHOEA [None]
  - DRUG HYPERSENSITIVITY [None]
  - ERYTHEMA [None]
  - GOUT [None]
  - HEADACHE [None]
  - HEPATIC STEATOSIS [None]
  - HYPERSENSITIVITY [None]
  - MUSCLE SPASMS [None]
  - NAUSEA [None]
  - OEDEMA [None]
  - PAIN IN EXTREMITY [None]
  - RASH [None]
  - RASH PRURITIC [None]
  - UPPER RESPIRATORY TRACT INFECTION [None]
  - WEIGHT DECREASED [None]
